FAERS Safety Report 16739651 (Version 1)
Quarter: 2019Q3

REPORT INFORMATION
  Report Type: Spontaneous
  Country: NL (occurrence: NL)
  Receive Date: 20190826
  Receipt Date: 20190826
  Transmission Date: 20191005
  Serious: Yes (Hospitalization)
  Sender: FDA-Public Use
  Company Number: NL-TEVA-2019-NL-1095404

PATIENT
  Sex: Female

DRUGS (15)
  1. ACENOCOUMAROL [Concomitant]
     Active Substance: ACENOCOUMAROL
     Dosage: 1DD1 ACCORDING TO SCHEDULE
  2. GLICAZIDE 80 MG [Concomitant]
     Dosage: 2DD1
  3. PERINDOPRIL 2 MG [Concomitant]
     Dosage: 1DD1
  4. RISEDRONINEZUUR 35 MG [Concomitant]
     Dosage: 1XPER WEEK
  5. FEBUXOSTAT 80 MG [Concomitant]
     Dosage: 1DD1
  6. CALCIUMCARBONAAT 500 MG [Concomitant]
     Dosage: 1DD1
  7. NITROFURANTOINE CAPSULE, 50 MG (MILLIGRAM) [Suspect]
     Active Substance: NITROFURANTOIN
     Indication: ANTIBIOTIC PROPHYLAXIS
  8. BISOPROLOL 5 MG [Concomitant]
     Active Substance: BISOPROLOL
     Dosage: 1DD1
  9. NITROFURANTOINE CAPSULE, 50 MG (MILLIGRAM) [Suspect]
     Active Substance: NITROFURANTOIN
     Indication: URINARY TRACT INFECTION
     Dosage: 1X 1 CAPSULE DAILY
     Dates: start: 20170123, end: 20170320
  10. DAVITAMON D/FOLIUMZUUR 10/400UG [Concomitant]
     Dosage: 1DD1
  11. CITALOPRAM [Concomitant]
     Active Substance: CITALOPRAM HYDROBROMIDE
     Dosage: 1DD1
  12. FUROSEMIDE 20 MG [Concomitant]
     Active Substance: FUROSEMIDE
     Dosage: 1DD1
  13. DIGOXINE 62,5 UG [Concomitant]
     Dosage: 1DD1
  14. PANTOPRAZOLE SODIUM. [Concomitant]
     Active Substance: PANTOPRAZOLE SODIUM
     Dosage: 1DD1
  15. DAVITAMON D/FOLIUMZUUR 10/400UG [Concomitant]
     Dosage: 1DD1

REACTIONS (2)
  - Pneumonitis [Recovered/Resolved with Sequelae]
  - Dyspnoea [Recovered/Resolved with Sequelae]
